FAERS Safety Report 11914950 (Version 1)
Quarter: 2016Q1

REPORT INFORMATION
  Report Type: Spontaneous
  Country: US (occurrence: CA)
  Receive Date: 20160113
  Receipt Date: 20160113
  Transmission Date: 20160526
  Serious: Yes (Other)
  Sender: FDA-Public Use
  Company Number: CA-TEVA-625108USA

PATIENT
  Age: 47 Year
  Sex: Female

DRUGS (4)
  1. ADALAT CC [Concomitant]
     Active Substance: NIFEDIPINE
     Dates: start: 2014
  2. FERAMAX [Concomitant]
     Active Substance: IRON\POLYSACCHARIDES
     Dates: start: 201505
  3. PRAVASTATIN [Suspect]
     Active Substance: PRAVASTATIN\PRAVASTATIN SODIUM
     Indication: HYPERLIPIDAEMIA
     Dosage: 40 MILLIGRAM DAILY; 40 MG HS
     Route: 048
     Dates: start: 20140101, end: 20160109
  4. NIACIN. [Concomitant]
     Active Substance: NIACIN
     Dates: start: 2014

REACTIONS (4)
  - Coeliac disease [Recovering/Resolving]
  - Insomnia [Recovering/Resolving]
  - Abdominal pain [Recovering/Resolving]
  - Diarrhoea [Recovering/Resolving]

NARRATIVE: CASE EVENT DATE: 201512
